FAERS Safety Report 9666238 (Version 1)
Quarter: 2013Q4

REPORT INFORMATION
  Report Type: Spontaneous
  Country: US (occurrence: None)
  Receive Date: 20131101
  Receipt Date: 20131101
  Transmission Date: 20140711
  Serious: Yes (Hospitalization)
  Sender: FDA-Public Use
  Company Number: None

PATIENT
  Age: 59 Year
  Sex: Male

DRUGS (1)
  1. CIMZIA [Suspect]
     Dosage: INJECT 400 MG SUBCUTANEOUSLY EVERY 4 WEEKS
     Dates: start: 20121220

REACTIONS (1)
  - Abdominal abscess [None]
